FAERS Safety Report 4407624-6 (Version None)
Quarter: 2004Q3

REPORT INFORMATION
  Report Type: 
  Country: None (occurrence: None)
  Receive Date: 20040721
  Receipt Date: 20040709
  Transmission Date: 20050211
  Serious: Yes (Other)
  Sender: FDA-Public Use
  Company Number: 2004IC000341

PATIENT
  Sex: Female

DRUGS (2)
  1. FLUOROURACIL [Suspect]
     Indication: COLON CANCER
     Dosage: 7 50 MG
     Dates: start: 20040618, end: 20040702
  2. LEUCOVORIN CALCIUM [Suspect]
     Indication: COLON CANCER
     Dosage: 400 MG
     Dates: start: 20040618, end: 20040702

REACTIONS (2)
  - ASTHENIA [None]
  - CEREBRAL HAEMORRHAGE [None]
